FAERS Safety Report 8951712 (Version 3)
Quarter: 2013Q2

REPORT INFORMATION
  Report Type: Report from Study
  Country: DE (occurrence: DE)
  Receive Date: 20121204
  Receipt Date: 20130621
  Transmission Date: 20140414
  Serious: Yes (Hospitalization)
  Sender: FDA-Public Use
  Company Number: DE-CELGENEUS-062-21880-12101835

PATIENT
  Age: 59 Year
  Sex: Female
  Weight: 57 kg

DRUGS (3)
  1. REVLIMID [Suspect]
     Indication: PLASMA CELL MYELOMA
     Dosage: 25 MILLIGRAM
     Route: 048
     Dates: start: 20120924, end: 20121022
  2. BORTEZOMIB [Suspect]
     Indication: PLASMA CELL MYELOMA
     Route: 058
     Dates: start: 20120224, end: 20120423
  3. CLEXANE [Concomitant]
     Indication: THROMBOSIS PROPHYLAXIS
     Dosage: .4 MILLILITER
     Route: 065
     Dates: start: 20121011

REACTIONS (3)
  - Arthritis [Not Recovered/Not Resolved]
  - Abscess [Not Recovered/Not Resolved]
  - Pain [Not Recovered/Not Resolved]
